FAERS Safety Report 9982394 (Version 1)
Quarter: 2014Q1

REPORT INFORMATION
  Report Type: Report from Study
  Country: US (occurrence: US)
  Receive Date: 20140307
  Receipt Date: 20140307
  Transmission Date: 20141002
  Serious: No
  Sender: FDA-Public Use
  Company Number: US-ABBVIE-13P-163-1180220-00

PATIENT
  Age: 46 Year
  Sex: Female
  Weight: 92.62 kg

DRUGS (7)
  1. HUMIRA [Suspect]
     Indication: CROHN^S DISEASE
     Route: 058
     Dates: start: 20131213, end: 20131213
  2. SOLU-MEDROL [Suspect]
     Indication: PRURITUS
     Dates: start: 20131213, end: 20131213
  3. BUSPIRONE [Concomitant]
     Indication: ANXIETY
  4. BENTYL [Concomitant]
     Indication: CROHN^S DISEASE
  5. MUPIROCIN [Concomitant]
     Indication: PRODUCT USED FOR UNKNOWN INDICATION
  6. ZOLOFT [Concomitant]
     Indication: DEPRESSION
  7. PEPCID [Concomitant]
     Indication: GASTROOESOPHAGEAL REFLUX DISEASE

REACTIONS (3)
  - Pruritus generalised [Recovered/Resolved]
  - Flushing [Recovered/Resolved]
  - Palpitations [Recovered/Resolved]
